FAERS Safety Report 7110814-5 (Version None)
Quarter: 2010Q4

REPORT INFORMATION
  Report Type: 
  Country: None (occurrence: None)
  Receive Date: 20101118
  Receipt Date: 20091009
  Transmission Date: 20110411
  Serious: No
  Sender: FDA-Public Use
  Company Number: US-TEVA-209077USA

PATIENT
  Sex: Female

DRUGS (3)
  1. ALBUTEROL SULFATE AUTOHALER [Suspect]
     Indication: CHRONIC OBSTRUCTIVE PULMONARY DISEASE
     Dosage: 2 PUFF AS NEEDED
     Route: 055
  2. TIOTROPIUM BROMIDE [Concomitant]
  3. MONTELUKAST [Concomitant]

REACTIONS (2)
  - CHOKING [None]
  - COUGH [None]
